FAERS Safety Report 6764949-7 (Version None)
Quarter: 2010Q2

REPORT INFORMATION
  Report Type: 
  Country: None (occurrence: None)
  Receive Date: 20100609
  Receipt Date: 20100504
  Transmission Date: 20101027
  Serious: No
  Sender: FDA-Public Use
  Company Number: 2010010869

PATIENT
  Age: 2 Year
  Sex: Male
  Weight: 14.0615 kg

DRUGS (2)
  1. CHILDREN'S ZYRTEC ALLERGY [Suspect]
     Indication: SEASONAL ALLERGY
     Dosage: 1/2 TSP DAILY, ORAL
     Route: 048
  2. SALBUTAMOL (SALBUTAMOL) [Concomitant]

REACTIONS (2)
  - PRODUCT QUALITY ISSUE [None]
  - URTICARIA [None]
